FAERS Safety Report 7296361-9 (Version None)
Quarter: 2011Q1

REPORT INFORMATION
  Report Type: 
  Country: None (occurrence: None)
  Receive Date: 20110216
  Receipt Date: 20110209
  Transmission Date: 20110831
  Serious: Yes (Life-Threatening, Hospitalization, Other)
  Sender: FDA-Public Use
  Company Number: GB-ABBOTT-10P-167-0678512-00

PATIENT
  Sex: Female
  Weight: 85.3 kg

DRUGS (8)
  1. CALCICHEW D3 FORTE [Concomitant]
     Indication: MINERAL SUPPLEMENTATION
     Dosage: 2 IN 1 DAY, WITH PRENISOLONE
     Route: 048
  2. HUMIRA [Suspect]
     Indication: RHEUMATOID ARTHRITIS
     Route: 058
     Dates: start: 20090701, end: 20100317
  3. AMITRIPTYLINE [Concomitant]
     Indication: PAIN
  4. ALENDRONATE [Concomitant]
     Indication: MINERAL SUPPLEMENTATION
     Dosage: 1 IN 1 WEEK, WITH PREDNISOLONE
     Route: 048
  5. AMITRIPTYLINE [Concomitant]
     Indication: INSOMNIA
     Dosage: 1 IN 1 DAY, NOCTE
     Route: 048
  6. HUMIRA [Suspect]
     Route: 058
     Dates: start: 20100610, end: 20100721
  7. PREDNISOLONE [Concomitant]
     Indication: RHEUMATOID ARTHRITIS
     Dosage: 1 IN 1 DAY, VARIOUS DOSES SINCE 2009
     Route: 048
     Dates: start: 20090101
  8. TRAMADOL SR [Concomitant]
     Indication: PAIN
     Dosage: 1 IN 1 DAY, NOCTE
     Route: 048

REACTIONS (4)
  - ARTHRODESIS [None]
  - VASCULITIS CEREBRAL [None]
  - CONFUSIONAL STATE [None]
  - HEADACHE [None]
